FAERS Safety Report 19521055 (Version 5)
Quarter: 2021Q4

REPORT INFORMATION
  Report Type: Report from Study
  Country: CA (occurrence: CA)
  Receive Date: 20210712
  Receipt Date: 20211231
  Transmission Date: 20220303
  Serious: Yes (Hospitalization, Other)
  Sender: FDA-Public Use
  Company Number: CA-BAUSCH-BL-2020-038205

PATIENT

DRUGS (6)
  1. CONTRAVE [Suspect]
     Active Substance: BUPROPION HYDROCHLORIDE\NALTREXONE HYDROCHLORIDE
     Indication: Weight control
     Dosage: 90 MG/8 MG.
     Route: 065
     Dates: start: 2020
  2. CONTRAVE [Suspect]
     Active Substance: BUPROPION HYDROCHLORIDE\NALTREXONE HYDROCHLORIDE
     Dosage: 90 MG/8 MG. 2 TABLETS MORNING AND 2 TABLETS EVENING
     Route: 048
     Dates: start: 20200928
  3. CONTRAVE [Suspect]
     Active Substance: BUPROPION HYDROCHLORIDE\NALTREXONE HYDROCHLORIDE
     Dosage: 90 MG/8 MG. 2 TABLETS MORNING AND 1 TABLET EVENING
     Route: 048
     Dates: start: 20201019, end: 20210810
  4. CONTRAVE [Suspect]
     Active Substance: BUPROPION HYDROCHLORIDE\NALTREXONE HYDROCHLORIDE
     Dosage: 90 MG/8 MG. 1TAB Q AM. THIRD ATTEMPT.
     Route: 048
     Dates: start: 20210920
  5. OLMESARTAN [Concomitant]
     Active Substance: OLMESARTAN
     Indication: Hypertension
     Dosage: 40/12.5 MG (1 DOSAGE FORMS,1 IN 1 D)
     Route: 048
  6. NAPROXEN [Concomitant]
     Active Substance: NAPROXEN
     Indication: Analgesic therapy
     Dosage: PRN
     Route: 048

REACTIONS (19)
  - Gastrointestinal infection [Recovered/Resolved]
  - Biliary colic [Recovered/Resolved]
  - Increased appetite [Not Recovered/Not Resolved]
  - Insomnia [Not Recovered/Not Resolved]
  - Feeling abnormal [Not Recovered/Not Resolved]
  - Food craving [Not Recovered/Not Resolved]
  - SARS-CoV-2 test positive [Recovered/Resolved]
  - Impulsive behaviour [Unknown]
  - Euphoric mood [Unknown]
  - Poor quality sleep [Not Recovered/Not Resolved]
  - Arthralgia [Recovering/Resolving]
  - Agitation [Recovered/Resolved]
  - Nausea [Recovered/Resolved]
  - Dizziness [Not Recovered/Not Resolved]
  - Therapeutic response unexpected [Unknown]
  - Drug titration error [Unknown]
  - Product dose omission in error [Unknown]
  - Intentional product use issue [Unknown]
  - Wrong technique in product usage process [Not Recovered/Not Resolved]

NARRATIVE: CASE EVENT DATE: 20200101
